FAERS Safety Report 9928966 (Version 1)
Quarter: 2014Q1

REPORT INFORMATION
  Report Type: Spontaneous
  Country: US (occurrence: None)
  Receive Date: 20140224
  Receipt Date: 20140224
  Transmission Date: 20141002
  Serious: Yes (Hospitalization)
  Sender: FDA-Public Use
  Company Number: FK201400575

PATIENT
  Age: 76 Year
  Sex: Male

DRUGS (3)
  1. LEVOFLOXACIN [Suspect]
     Indication: ANTIBIOTIC THERAPY
     Route: 048
  2. VANCOMYCIN (VANCOMYCIN) [Concomitant]
  3. PIPERACILLIN AND TAZOBACTAM (PIPERACILIN, TAZOBACTAM) (PIPERACILLIN, TAZOBACTAM) [Concomitant]

REACTIONS (2)
  - Oedema peripheral [None]
  - Stasis dermatitis [None]
